FAERS Safety Report 7286239-9 (Version None)
Quarter: 2011Q1

REPORT INFORMATION
  Report Type: 
  Country: None (occurrence: None)
  Receive Date: 20110210
  Receipt Date: 20110202
  Transmission Date: 20110831
  Serious: Yes (Hospitalization)
  Sender: FDA-Public Use
  Company Number: PHHY2011US08476

PATIENT
  Sex: Female

DRUGS (1)
  1. FANAPT [Suspect]
     Dosage: 8 MG, UNK

REACTIONS (2)
  - SCHIZOPHRENIA, RESIDUAL TYPE [None]
  - ACTIVITIES OF DAILY LIVING IMPAIRED [None]
